FAERS Safety Report 7079329-7 (Version None)
Quarter: 2010Q4

REPORT INFORMATION
  Report Type: 
  Country: None (occurrence: None)
  Receive Date: 20101102
  Receipt Date: 20100608
  Transmission Date: 20110411
  Serious: No
  Sender: FDA-Public Use
  Company Number: A0863783A

PATIENT
  Age: 67 Year
  Sex: Female

DRUGS (3)
  1. RYTHMOL SR [Suspect]
     Indication: ATRIAL FIBRILLATION
     Dosage: 225MG TWICE PER DAY
     Route: 048
     Dates: start: 20100601
  2. ATENOLOL [Concomitant]
  3. ASPIRIN [Concomitant]

REACTIONS (3)
  - DYSGEUSIA [None]
  - NAUSEA [None]
  - VOMITING [None]
